FAERS Safety Report 23664058 (Version 10)
Quarter: 2025Q1

REPORT INFORMATION
  Report Type: Report from Study
  Country: US (occurrence: US)
  Receive Date: 20240322
  Receipt Date: 20250102
  Transmission Date: 20250409
  Serious: Yes (Hospitalization, Other)
  Sender: TAKEDA
  Company Number: US-TAKEDA-2024TUS024362

PATIENT
  Age: 61 Year
  Sex: Female
  Weight: 78.46 kg

DRUGS (14)
  1. HUMAN IMMUNOGLOBULIN G [Suspect]
     Active Substance: HUMAN IMMUNOGLOBULIN G
     Indication: Immune system disorder
     Dosage: 40 GRAM, Q4WEEKS
     Dates: start: 20240313
  2. HUMAN IMMUNOGLOBULIN G [Suspect]
     Active Substance: HUMAN IMMUNOGLOBULIN G
     Indication: Hypergammaglobulinaemia
  3. EPINEPHRINE [Concomitant]
     Active Substance: EPINEPHRINE
  4. ACETAMINOPHEN [Concomitant]
     Active Substance: ACETAMINOPHEN
  5. SODIUM CHLORIDE [Concomitant]
     Active Substance: SODIUM CHLORIDE
  6. HEPARIN [Concomitant]
     Active Substance: HEPARIN SODIUM
  7. EPIPEN [Concomitant]
     Active Substance: EPINEPHRINE
  8. LIDOCAINE [Concomitant]
     Active Substance: LIDOCAINE
  9. DIPHENHYDRAMINE HYDROCHLORIDE [Concomitant]
     Active Substance: DIPHENHYDRAMINE HYDROCHLORIDE
  10. RYBELSUS [Concomitant]
     Active Substance: SEMAGLUTIDE
  11. CARDIZEM CD [Concomitant]
     Active Substance: DILTIAZEM HYDROCHLORIDE
  12. ELIQUIS [Concomitant]
     Active Substance: APIXABAN
  13. FLECAINIDE ACETATE [Concomitant]
     Active Substance: FLECAINIDE ACETATE
  14. METFORMIN [Concomitant]
     Active Substance: METFORMIN HYDROCHLORIDE

REACTIONS (30)
  - Atrial fibrillation [Unknown]
  - Thrombosis [Unknown]
  - Anaphylactic reaction [Unknown]
  - Transient ischaemic attack [Unknown]
  - Rhinitis allergic [Unknown]
  - Head discomfort [Unknown]
  - Food allergy [Unknown]
  - Product dose omission issue [Unknown]
  - Neck pain [Unknown]
  - Road traffic accident [Unknown]
  - Concussion [Unknown]
  - Goitre [Unknown]
  - Thyroiditis [Unknown]
  - Confusional state [Unknown]
  - Blood glucose increased [Unknown]
  - Weight increased [Unknown]
  - Sinonasal obstruction [Unknown]
  - Memory impairment [Unknown]
  - Infusion related reaction [Unknown]
  - Throat irritation [Unknown]
  - Dyspnoea exertional [Unknown]
  - Illness [Unknown]
  - Contusion [Unknown]
  - Swelling [Not Recovered/Not Resolved]
  - Influenza like illness [Recovered/Resolved]
  - Back pain [Unknown]
  - Infusion site swelling [Unknown]
  - Fatigue [Unknown]
  - Nausea [Unknown]
  - Headache [Recovered/Resolved]

NARRATIVE: CASE EVENT DATE: 20240605
